FAERS Safety Report 20602547 (Version 1)
Quarter: 2022Q1

REPORT INFORMATION
  Report Type: Spontaneous
  Country: CN (occurrence: CN)
  Receive Date: 20220316
  Receipt Date: 20220316
  Transmission Date: 20220423
  Serious: Yes (Other)
  Sender: FDA-Public Use
  Company Number: CN-PFIZER INC-202200365296

PATIENT
  Age: 4 Year
  Sex: Male

DRUGS (6)
  1. METHYLPREDNISOLONE SODIUM SUCCINATE [Suspect]
     Active Substance: METHYLPREDNISOLONE SODIUM SUCCINATE
     Indication: Nephrotic syndrome
     Dosage: 35 MG, DAILY
     Route: 042
     Dates: start: 20200611
  2. METHYLPREDNISOLONE SODIUM SUCCINATE [Suspect]
     Active Substance: METHYLPREDNISOLONE SODIUM SUCCINATE
     Dosage: 20 MG, 1X/DAY
     Route: 041
  3. PREDNISONE ACETATE [Suspect]
     Active Substance: PREDNISONE ACETATE
     Indication: Nephrotic syndrome
     Dosage: UNK UNK, 3X/DAY
     Route: 048
  4. PREDNISONE ACETATE [Suspect]
     Active Substance: PREDNISONE ACETATE
     Dosage: 40 MG, DAILY
     Route: 041
     Dates: start: 20200710
  5. CYCLOSPORINE [Concomitant]
     Active Substance: CYCLOSPORINE
     Dosage: 50 MG, 1X/DAY
     Route: 048
  6. CYCLOSPORINE [Concomitant]
     Active Substance: CYCLOSPORINE
     Dosage: 25 MG, 1X/DAY
     Route: 048

REACTIONS (2)
  - Cerebral venous sinus thrombosis [Recovered/Resolved]
  - Drug resistance [Recovered/Resolved]
